FAERS Safety Report 12773241 (Version 1)
Quarter: 2016Q3

REPORT INFORMATION
  Report Type: Spontaneous
  Country: US (occurrence: US)
  Receive Date: 20160922
  Receipt Date: 20160922
  Transmission Date: 20161109
  Serious: Yes (Hospitalization)
  Sender: FDA-Public Use
  Company Number: US-ASTRAZENECA-2016SF00386

PATIENT
  Age: 58 Year
  Sex: Female
  Weight: 72.6 kg

DRUGS (14)
  1. GENERIC FOR ZOFRAN [Concomitant]
     Indication: NAUSEA
     Dosage: 4.0MG AS REQUIRED
     Route: 048
     Dates: start: 201607
  2. CLONAZEPAM. [Concomitant]
     Active Substance: CLONAZEPAM
     Indication: DEPRESSION
     Dosage: 1.0MG UNKNOWN
     Route: 048
  3. QUETIAPINE FUMARATE. [Suspect]
     Active Substance: QUETIAPINE FUMARATE
     Indication: DEPRESSED MOOD
     Route: 048
     Dates: start: 2014, end: 2015
  4. QUETIAPINE FUMARATE. [Suspect]
     Active Substance: QUETIAPINE FUMARATE
     Indication: DEPRESSED MOOD
     Route: 048
     Dates: start: 2015, end: 20160914
  5. TRAZODONE [Concomitant]
     Active Substance: TRAZODONE HYDROCHLORIDE
     Indication: SLEEP DISORDER
     Route: 048
  6. XANAX [Concomitant]
     Active Substance: ALPRAZOLAM
     Route: 048
  7. SIMVASTATIN. [Concomitant]
     Active Substance: SIMVASTATIN
     Indication: BLOOD CHOLESTEROL ABNORMAL
     Route: 048
     Dates: end: 201601
  8. FENOFIBRATE. [Concomitant]
     Active Substance: FENOFIBRATE
     Indication: BLOOD CHOLESTEROL ABNORMAL
     Route: 048
     Dates: start: 201607
  9. CYMBALTA [Concomitant]
     Active Substance: DULOXETINE HYDROCHLORIDE
     Indication: DEPRESSION
     Route: 048
  10. CYMBALTA [Concomitant]
     Active Substance: DULOXETINE HYDROCHLORIDE
     Indication: DEPRESSION
     Route: 048
  11. LIPITOR [Concomitant]
     Active Substance: ATORVASTATIN CALCIUM
     Indication: BLOOD CHOLESTEROL ABNORMAL
     Route: 048
     Dates: start: 201607
  12. NORCO [Concomitant]
     Active Substance: ACETAMINOPHEN\HYDROCODONE BITARTRATE
     Indication: PAIN
     Dosage: EVERY 4 TO 6 HOURS AS NEEDED
     Route: 048
     Dates: start: 20160725
  13. CLONAZEPAM. [Concomitant]
     Active Substance: CLONAZEPAM
     Indication: DEPRESSION
     Dosage: 0.5MG UNKNOWN
     Route: 048
  14. QUETIAPINE FUMARATE. [Suspect]
     Active Substance: QUETIAPINE FUMARATE
     Indication: DEPRESSED MOOD
     Route: 048
     Dates: start: 2015, end: 2015

REACTIONS (12)
  - Pain in extremity [Unknown]
  - Hepatomegaly [Unknown]
  - Pancreatic disorder [Unknown]
  - Abdominal discomfort [Unknown]
  - Pancreatitis [Unknown]
  - Weight decreased [Unknown]
  - Gastric infection [Unknown]
  - Gastrooesophageal reflux disease [Unknown]
  - Milk allergy [Unknown]
  - Hepatic steatosis [Unknown]
  - Blood cholesterol increased [Unknown]
  - Drug ineffective [Unknown]

NARRATIVE: CASE EVENT DATE: 2014
